FAERS Safety Report 5937471-5 (Version None)
Quarter: 2008Q4

REPORT INFORMATION
  Report Type: 
  Country: None (occurrence: None)
  Receive Date: 20081031
  Receipt Date: 20081023
  Transmission Date: 20090506
  Serious: Yes (Hospitalization)
  Sender: FDA-Public Use
  Company Number: B0543201A

PATIENT
  Age: 24 Year
  Sex: Female

DRUGS (4)
  1. AUGMENTIN '125' [Suspect]
     Indication: BARTHOLINITIS
     Route: 048
     Dates: start: 20080925, end: 20080926
  2. NIFLURIL [Suspect]
     Indication: BARTHOLINITIS
     Route: 048
     Dates: start: 20080925, end: 20080926
  3. LAMALINE [Suspect]
     Indication: BARTHOLINITIS
     Route: 048
     Dates: start: 20080925, end: 20080926
  4. HOMEOPATHIC MEDICATION [Concomitant]
     Indication: BARTHOLINITIS
     Route: 065

REACTIONS (12)
  - DERMATITIS [None]
  - ERYTHEMA [None]
  - FACE OEDEMA [None]
  - HUMAN HERPESVIRUS 6 INFECTION [None]
  - LEUKOCYTOSIS [None]
  - OEDEMA PERIPHERAL [None]
  - PRURITUS [None]
  - PURPURA [None]
  - PYREXIA [None]
  - RASH MACULAR [None]
  - SKIN NECROSIS [None]
  - TOXIC SKIN ERUPTION [None]
